FAERS Safety Report 5689843-4 (Version None)
Quarter: 2008Q2

REPORT INFORMATION
  Report Type: 
  Country: None (occurrence: None)
  Receive Date: 20080401
  Receipt Date: 20080320
  Transmission Date: 20081010
  Serious: Yes (Hospitalization)
  Sender: FDA-Public Use
  Company Number: CA-RANBAXY-2008RR-13963

PATIENT

DRUGS (2)
  1. LORAZEPAM [Suspect]
     Dosage: UNK
  2. RISPERIDONE [Suspect]
     Indication: ANXIETY
     Dosage: 0.25 MG, BID

REACTIONS (1)
  - RESPIRATORY FAILURE [None]
